FAERS Safety Report 9434021 (Version 1)
Quarter: 2013Q3

REPORT INFORMATION
  Report Type: Other
  Country: GB (occurrence: GB)
  Receive Date: 20130801
  Receipt Date: 20130801
  Transmission Date: 20140515
  Serious: Yes (Other)
  Sender: FDA-Public Use
  Company Number: GB-LUPIN PHARMACEUTICALS INC.-E2B_00001095

PATIENT
  Age: 40 Year
  Sex: Female
  Weight: 100 kg

DRUGS (2)
  1. SERTRALINE [Suspect]
     Indication: DEPRESSED MOOD
     Route: 048
     Dates: start: 20130312, end: 20130627
  2. HYDROCORTISONE CREAM PBG [Concomitant]
     Indication: PRODUCT USED FOR UNKNOWN INDICATION
     Route: 065

REACTIONS (2)
  - Ovarian failure [Unknown]
  - Amenorrhoea [Unknown]
